FAERS Safety Report 8832315 (Version 3)
Quarter: 2012Q4

REPORT INFORMATION
  Report Type: 
  Country: DE (occurrence: DE)
  Receive Date: 20121009
  Receipt Date: 20121115
  Transmission Date: 20130627
  Serious: Yes (Hospitalization, Other)
  Sender: FDA-Public Use
  Company Number: DE-ABBOTT-12P-062-0986295-00

PATIENT
  Age: 78 None
  Sex: Female

DRUGS (6)
  1. HUMIRA [Suspect]
     Indication: RHEUMATOID ARTHRITIS
     Route: 058
     Dates: start: 20070611, end: 20120912
  2. METHOTREXATE [Concomitant]
     Indication: PRODUCT USED FOR UNKNOWN INDICATION
  3. CORTISONE [Concomitant]
     Indication: PRODUCT USED FOR UNKNOWN INDICATION
  4. FOLIC ACID [Concomitant]
     Indication: PRODUCT USED FOR UNKNOWN INDICATION
  5. ACTONEL [Concomitant]
     Indication: PRODUCT USED FOR UNKNOWN INDICATION
  6. EFEROX [Concomitant]
     Indication: HYPOTHYROIDISM

REACTIONS (7)
  - Cerebral ischaemia [Recovering/Resolving]
  - Circulatory collapse [Recovering/Resolving]
  - Unevaluable event [Recovering/Resolving]
  - Vomiting [Recovering/Resolving]
  - Unevaluable event [Not Recovered/Not Resolved]
  - Hypertension [Not Recovered/Not Resolved]
  - Dysphagia [Not Recovered/Not Resolved]
